FAERS Safety Report 12212784 (Version 1)
Quarter: 2016Q1

REPORT INFORMATION
  Report Type: Spontaneous
  Country: US (occurrence: US)
  Receive Date: 20160328
  Receipt Date: 20160328
  Transmission Date: 20160526
  Serious: Yes (Other)
  Sender: FDA-Public Use
  Company Number: US-CIPLA LTD.-2016US02865

PATIENT

DRUGS (4)
  1. IRINOTECAN [Suspect]
     Active Substance: IRINOTECAN
     Indication: OESOPHAGEAL ADENOCARCINOMA
     Dosage: 65 MG/M2, ON DAY 1, 8, 22, 29 DURING 45 GY RADIATION THERAPY
     Route: 065
  2. IRINOTECAN [Suspect]
     Active Substance: IRINOTECAN
     Dosage: 65 MG/M2, ON DAYS 1 AND 8 FOR 2 WEEKS FOLLOWED BY 1 WEEK REST
     Route: 065
  3. CISPLATIN. [Suspect]
     Active Substance: CISPLATIN
     Indication: OESOPHAGEAL ADENOCARCINOMA
     Dosage: 30 MG/M2, ON DAY 1, 8, 22, 29 DURING 45 GY RADIATION THERAPY
     Route: 065
  4. CISPLATIN. [Suspect]
     Active Substance: CISPLATIN
     Dosage: 30 MG/M2, ON DAYS 1 AND 8 FOR 2 WEEKS FOLLOWED BY 1 WEEK REST
     Route: 065

REACTIONS (1)
  - Toxicity to various agents [Unknown]
